FAERS Safety Report 7549352-4 (Version None)
Quarter: 2011Q2

REPORT INFORMATION
  Report Type: 
  Country: None (occurrence: None)
  Receive Date: 20110615
  Receipt Date: 20040407
  Transmission Date: 20111010
  Serious: Yes (Death, Hospitalization)
  Sender: FDA-Public Use
  Company Number: PHHO2004JP01967

PATIENT
  Sex: Female
  Weight: 48 kg

DRUGS (7)
  1. BENET [Concomitant]
     Indication: OSTEOPOROSIS
  2. LIPITOR [Concomitant]
     Indication: HYPERCHOLESTEROLAEMIA
  3. PENFILL N [Concomitant]
     Indication: DIABETES MELLITUS
  4. CARBAZOCHROME SODIUM SULFONATE [Concomitant]
     Indication: DIABETIC RETINOPATHY
  5. TAGAMET [Concomitant]
     Indication: GASTRITIS
  6. DIOVAN [Suspect]
     Dosage: 80 MG, DAY
     Route: 048
     Dates: start: 20021218, end: 20030628
  7. BASEN [Concomitant]
     Indication: DIABETES MELLITUS

REACTIONS (3)
  - MALAISE [None]
  - DEATH [None]
  - BILE DUCT OBSTRUCTION [None]
